FAERS Safety Report 5431968-2 (Version None)
Quarter: 2007Q3

REPORT INFORMATION
  Report Type: 
  Country: None (occurrence: None)
  Receive Date: 20070830
  Receipt Date: 20070820
  Transmission Date: 20080115
  Serious: Yes (Hospitalization, Other)
  Sender: FDA-Public Use
  Company Number: US-PFIZER INC-2007043270

PATIENT
  Sex: Male

DRUGS (1)
  1. CELEBREX [Suspect]

REACTIONS (5)
  - CONFUSIONAL STATE [None]
  - DYSPNOEA [None]
  - HEADACHE [None]
  - MOTOR DYSFUNCTION [None]
  - MYOCARDIAL INFARCTION [None]
